FAERS Safety Report 9015985 (Version 6)
Quarter: 2013Q4

REPORT INFORMATION
  Report Type: Spontaneous
  Country: US (occurrence: US)
  Receive Date: 20130116
  Receipt Date: 20131212
  Transmission Date: 20140711
  Serious: Yes (Other)
  Sender: FDA-Public Use
  Company Number: US-TEVA-381048USA

PATIENT
  Age: 31 Year
  Sex: Female

DRUGS (3)
  1. ACTIQ [Suspect]
     Indication: PAIN
     Dosage: BID PRN
     Route: 048
     Dates: start: 2006, end: 2009
  2. ACTIQ [Suspect]
     Route: 062
  3. XANAX [Concomitant]

REACTIONS (16)
  - Withdrawal syndrome [Unknown]
  - Nausea [Unknown]
  - Vomiting [Unknown]
  - Muscle twitching [Unknown]
  - Diarrhoea [Unknown]
  - Pain in jaw [Unknown]
  - Jaw fracture [Unknown]
  - Otitis media [Unknown]
  - Sinusitis [Unknown]
  - Bronchitis [Unknown]
  - Ear pain [Unknown]
  - Dental caries [Not Recovered/Not Resolved]
  - Tooth loss [Unknown]
  - Fall [Unknown]
  - Tooth injury [Unknown]
  - Off label use [Unknown]
